FAERS Safety Report 14254531 (Version 1)
Quarter: 2017Q4

REPORT INFORMATION
  Report Type: Spontaneous
  Country: US (occurrence: None)
  Receive Date: 20171205
  Receipt Date: 20171205
  Transmission Date: 20180321
  Serious: No
  Sender: FDA-Public Use
  Company Number: None

PATIENT
  Age: 41 Year
  Sex: Female

DRUGS (5)
  1. DIVALPROEX ER 500MG-NORTHSTAR [Suspect]
     Active Substance: DIVALPROEX SODIUM
     Indication: BIPOLAR DISORDER
     Route: 048
     Dates: start: 20171107, end: 20171117
  2. CLONAZEPAM. [Concomitant]
     Active Substance: CLONAZEPAM
  3. VRAYLAR [Concomitant]
     Active Substance: CARIPRAZINE
  4. NEURONTIN [Concomitant]
     Active Substance: GABAPENTIN
  5. LAMOTRIGINE. [Concomitant]
     Active Substance: LAMOTRIGINE

REACTIONS (4)
  - Therapeutic response changed [None]
  - Insurance issue [None]
  - Product substitution issue [None]
  - Loss of personal independence in daily activities [None]

NARRATIVE: CASE EVENT DATE: 20171117
